FAERS Safety Report 20779621 (Version 1)
Quarter: 2022Q2

REPORT INFORMATION
  Report Type: Spontaneous
  Country: US (occurrence: None)
  Receive Date: 20220503
  Receipt Date: 20220503
  Transmission Date: 20220720
  Serious: Yes (Death, Hospitalization)
  Sender: FDA-Public Use
  Company Number: None

PATIENT
  Age: 62 Year
  Sex: Male
  Weight: 78.75 kg

DRUGS (3)
  1. VENCLEXTA [Suspect]
     Active Substance: VENETOCLAX
     Indication: Non-Hodgkin^s lymphoma
     Dates: start: 20220307, end: 20220414
  2. possibly blood thinner [Concomitant]
  3. possibly blood pressure [Concomitant]

REACTIONS (3)
  - Small intestinal obstruction [None]
  - Weight decreased [None]
  - Atrial fibrillation [None]

NARRATIVE: CASE EVENT DATE: 20220414
